FAERS Safety Report 7238739-5 (Version None)
Quarter: 2011Q1

REPORT INFORMATION
  Report Type: 
  Country: None (occurrence: None)
  Receive Date: 20110121
  Receipt Date: 20110118
  Transmission Date: 20110831
  Serious: Yes (Hospitalization)
  Sender: FDA-Public Use
  Company Number: DE-ABBOTT-11P-062-0698924-00

PATIENT
  Sex: Female

DRUGS (4)
  1. BUDESONIDE [Concomitant]
     Indication: CROHN'S DISEASE
  2. HUMIRA [Suspect]
     Indication: CROHN'S DISEASE
     Route: 058
     Dates: start: 20100510, end: 20101101
  3. HUMIRA [Suspect]
     Dosage: LOADING DOSE 160MG
     Route: 058
     Dates: start: 20110117, end: 20110117
  4. HUMIRA [Suspect]
     Route: 058

REACTIONS (1)
  - INTESTINAL STENOSIS [None]
